FAERS Safety Report 10494376 (Version 2)
Quarter: 2014Q4

REPORT INFORMATION
  Report Type: Spontaneous
  Country: US (occurrence: US)
  Receive Date: 20141003
  Receipt Date: 20141003
  Transmission Date: 20150528
  Serious: Yes (Hospitalization)
  Sender: FDA-Public Use
  Company Number: US-JNJFOC-20140822697

PATIENT
  Age: 82 Year
  Sex: Female

DRUGS (11)
  1. VITAMIN C [Concomitant]
     Active Substance: ASCORBIC ACID
     Route: 048
  2. CALTRATE WITH VITAMIN D [Concomitant]
     Active Substance: CALCIUM CARBONATE\VITAMIN D
     Dosage: 600 MG/ 400 MG
     Route: 048
  3. IMBRUVICA [Suspect]
     Active Substance: IBRUTINIB
     Indication: CHRONIC LYMPHOCYTIC LEUKAEMIA
     Route: 048
     Dates: start: 20140722, end: 201408
  4. ESTRACE [Concomitant]
     Active Substance: ESTRADIOL
     Route: 048
  5. FISH OIL [Concomitant]
     Active Substance: FISH OIL
     Route: 048
  6. PROZAC [Concomitant]
     Active Substance: FLUOXETINE HYDROCHLORIDE
     Route: 048
  7. NASONEX [Concomitant]
     Active Substance: MOMETASONE FUROATE
     Dosage: 50 MCG
  8. FERROUS SULFATE [Concomitant]
     Active Substance: FERROUS SULFATE\FERROUS SULFATE, DRIED
     Route: 048
  9. RED YEAST RICE EXTRACT [Concomitant]
     Route: 048
  10. PATADAY [Concomitant]
     Active Substance: OLOPATADINE HYDROCHLORIDE
     Route: 047
  11. DEXILANT [Concomitant]
     Active Substance: DEXLANSOPRAZOLE
     Route: 048

REACTIONS (5)
  - Dehydration [Unknown]
  - Oedema [Not Recovered/Not Resolved]
  - Gastroenteritis [Unknown]
  - Blood potassium decreased [Unknown]
  - Protein total decreased [Unknown]

NARRATIVE: CASE EVENT DATE: 201408
